FAERS Safety Report 9354285 (Version 1)
Quarter: 2013Q2

REPORT INFORMATION
  Report Type: Spontaneous
  Country: US (occurrence: US)
  Receive Date: 20130618
  Receipt Date: 20130618
  Transmission Date: 20140414
  Serious: No
  Sender: FDA-Public Use
  Company Number: US-COVIDIEN/TYCO HEALTHCARE/MALLINCKRODT-T201302227

PATIENT
  Age: 52 Year
  Sex: Female

DRUGS (4)
  1. ULTRATAG RBC [Suspect]
     Indication: MULTIPLE GATED ACQUISITION SCAN
     Dosage: UNK
  2. TECHNETIUM TC 99M [Concomitant]
     Dosage: UNK
  3. HEPARIN [Concomitant]
     Dosage: UNK
  4. CYTOXIN VOXORUBICIN [Concomitant]
     Indication: CHEMOTHERAPY
     Dosage: UNK
     Dates: end: 20130423

REACTIONS (1)
  - Drug ineffective [Unknown]
